FAERS Safety Report 19202072 (Version 1)
Quarter: 2021Q2

REPORT INFORMATION
  Report Type: Spontaneous
  Country: US (occurrence: US)
  Receive Date: 20210430
  Receipt Date: 20210430
  Transmission Date: 20210717
  Serious: No
  Sender: FDA-Public Use
  Company Number: US-GLAXOSMITHKLINE-USCH2021AMR020940

PATIENT
  Sex: Male
  Weight: 102.06 kg

DRUGS (4)
  1. IBUPROFEN. [Suspect]
     Active Substance: IBUPROFEN
     Indication: DENTAL DISCOMFORT
  2. IBUPROFEN. [Suspect]
     Active Substance: IBUPROFEN
     Indication: MYALGIA
  3. IBUPROFEN. [Suspect]
     Active Substance: IBUPROFEN
     Indication: PAIN IN JAW
     Dosage: 800 MG
  4. IBUPROFEN. [Suspect]
     Active Substance: IBUPROFEN
     Indication: ARTHRALGIA

REACTIONS (3)
  - Expired product administered [Unknown]
  - Therapeutic product effect incomplete [Unknown]
  - Somnolence [Unknown]
